FAERS Safety Report 12619778 (Version 1)
Quarter: 2016Q3

REPORT INFORMATION
  Report Type: Spontaneous
  Country: ID (occurrence: ID)
  Receive Date: 20160803
  Receipt Date: 20160803
  Transmission Date: 20161109
  Serious: Yes (Death)
  Sender: FDA-Public Use
  Company Number: ID-B.I. PHARMACEUTICALS,INC./RIDGEFIELD-2016-BI-49902IP

PATIENT
  Sex: Female

DRUGS (1)
  1. GILOTRIF [Suspect]
     Active Substance: AFATINIB
     Indication: NON-SMALL CELL LUNG CANCER
     Dosage: 40 MG
     Route: 048
     Dates: start: 201601

REACTIONS (1)
  - Metastases to meninges [Fatal]

NARRATIVE: CASE EVENT DATE: 201601
